FAERS Safety Report 5739698-4 (Version None)
Quarter: 2008Q2

REPORT INFORMATION
  Report Type: 
  Country: None (occurrence: None)
  Receive Date: 20080513
  Receipt Date: 20080428
  Transmission Date: 20081010
  Serious: Yes (Other)
  Sender: FDA-Public Use
  Company Number: S08-ITA-01716-01

PATIENT
  Age: 81 Year
  Sex: Male

DRUGS (8)
  1. ESCITALOPRAM [Suspect]
     Indication: DEPRESSION
     Dosage: 10 MG QD PO
     Route: 048
     Dates: start: 20070614, end: 20070822
  2. AMIODARONE [Concomitant]
  3. BISOPROLOLE (BISOPROLOL) [Concomitant]
  4. WARFARIN SODIUM [Concomitant]
  5. ATORVASTATINE (ATORVASTATIN) [Concomitant]
  6. GLIMEPIRIDE [Concomitant]
  7. RAMIPRIL [Concomitant]
  8. BARNIDIPINE [Concomitant]

REACTIONS (2)
  - HALLUCINATION, TACTILE [None]
  - HALLUCINATION, VISUAL [None]
